FAERS Safety Report 9353469 (Version 2)
Quarter: 2015Q1

REPORT INFORMATION
  Report Type: Spontaneous
  Country: JP (occurrence: JP)
  Receive Date: 20130618
  Receipt Date: 20150225
  Transmission Date: 20150721
  Serious: Yes (Other)
  Sender: FDA-Public Use
  Company Number: JP-ASTRAZENECA-2013SE41021

PATIENT

DRUGS (7)
  1. LIDOCAINE. [Concomitant]
     Active Substance: LIDOCAINE
     Dosage: DOSE UNKNOWN
     Route: 064
  2. MORPHINE HYDROCHLORIDE HYDRATE [Concomitant]
     Active Substance: MORPHINE HYDROCHLORIDE
     Route: 064
  3. CEFAZOLIN SODIUM. [Concomitant]
     Active Substance: CEFAZOLIN SODIUM
     Dosage: DOSE UNKNOWN
     Route: 064
  4. MARCAINE [Suspect]
     Active Substance: BUPIVACAINE HYDROCHLORIDE
     Dosage: DOSE UNKNOWN
     Route: 064
  5. OXYGEN. [Concomitant]
     Active Substance: OXYGEN
     Dosage: 2 L/MIN
     Route: 064
  6. ACETATED RINGER [Concomitant]
     Route: 064
  7. OXYGEN. [Concomitant]
     Active Substance: OXYGEN
     Dosage: 6 L/MIN
     Route: 064

REACTIONS (4)
  - Apgar score low [Recovering/Resolving]
  - Neonatal respiratory depression [Recovering/Resolving]
  - Hypoxic-ischaemic encephalopathy [Unknown]
  - Acidosis [Recovering/Resolving]
